FAERS Safety Report 13003637 (Version 1)
Quarter: 2016Q4

REPORT INFORMATION
  Report Type: Report from Study
  Country: JP (occurrence: JP)
  Receive Date: 20161206
  Receipt Date: 20161206
  Transmission Date: 20170207
  Serious: Yes (Hospitalization)
  Sender: FDA-Public Use
  Company Number: JP-EISAI MEDICAL RESEARCH-EC-2016-022891

PATIENT
  Age: 59 Year
  Sex: Female
  Weight: 64 kg

DRUGS (14)
  1. LENVIMA [Suspect]
     Active Substance: LENVATINIB
     Route: 048
     Dates: start: 20150728, end: 20150809
  2. CALCIUM LACTATE HYDRATE [Suspect]
     Active Substance: CALCIUM LACTATE
     Indication: OSTEOPOROSIS PROPHYLAXIS
  3. LEVOTHYROXINE SODIUM HYDRATE [Concomitant]
     Active Substance: LEVOTHYROXINE SODIUM
  4. ACECOL [Concomitant]
     Active Substance: TEMOCAPRIL HYDROCHLORIDE
  5. LENVIMA [Suspect]
     Active Substance: LENVATINIB
     Route: 048
     Dates: start: 20150904
  6. ALFAROL [Suspect]
     Active Substance: ALFACALCIDOL
     Indication: RENAL DISORDER
     Dosage: UNKNOWN
     Route: 048
  7. PROPETO [Concomitant]
  8. LENVIMA [Suspect]
     Active Substance: LENVATINIB
     Route: 048
     Dates: start: 20150714, end: 20150719
  9. CALCIUM LACTATE HYDRATE [Suspect]
     Active Substance: CALCIUM LACTATE
     Indication: RENAL DISORDER
     Dosage: UNKNOWN
     Route: 048
  10. LENVIMA [Suspect]
     Active Substance: LENVATINIB
     Indication: PAPILLARY THYROID CANCER
     Route: 048
     Dates: start: 20150623, end: 20150705
  11. LENVIMA [Suspect]
     Active Substance: LENVATINIB
     Route: 048
     Dates: start: 20150810, end: 20150817
  12. ALFAROL [Suspect]
     Active Substance: ALFACALCIDOL
     Indication: OSTEOPOROSIS PROPHYLAXIS
  13. CALBLOCK [Concomitant]
     Active Substance: AZELNIDIPINE
  14. PASTARON [Concomitant]
     Active Substance: UREA

REACTIONS (5)
  - Dry mouth [Recovering/Resolving]
  - Hypercalcaemia [Recovered/Resolved]
  - Malaise [Recovered/Resolved]
  - Renal impairment [Recovering/Resolving]
  - Appendicitis [Recovered/Resolved]

NARRATIVE: CASE EVENT DATE: 20150630
